FAERS Safety Report 8611859-6 (Version None)
Quarter: 2012Q3

REPORT INFORMATION
  Report Type: 
  Country: None (occurrence: None)
  Receive Date: 20120822
  Receipt Date: 20120813
  Transmission Date: 20120928
  Serious: Yes (Other)
  Sender: FDA-Public Use
  Company Number: CA-ROCHE-GNE314169

PATIENT
  Sex: Female

DRUGS (7)
  1. THEOPHYLLINE [Concomitant]
     Indication: PRODUCT USED FOR UNKNOWN INDICATION
  2. SINGULAIR [Concomitant]
     Indication: PRODUCT USED FOR UNKNOWN INDICATION
  3. MOXIFLOXACIN HYDROCHLORIDE [Concomitant]
     Dates: end: 20120604
  4. XOLAIR [Suspect]
     Indication: ASTHMA
     Route: 058
     Dates: start: 20100607
  5. ALVESCO [Concomitant]
     Indication: PRODUCT USED FOR UNKNOWN INDICATION
  6. PREDNISONE TAB [Concomitant]
     Dates: end: 20120604
  7. FLUTICASONE PROPIONATE/SALMETEROL [Concomitant]
     Indication: PRODUCT USED FOR UNKNOWN INDICATION

REACTIONS (12)
  - LOWER RESPIRATORY TRACT INFECTION [None]
  - HYPOTENSION [None]
  - PALLOR [None]
  - COUGH [None]
  - CHOKING [None]
  - FATIGUE [None]
  - INFLUENZA [None]
  - DIZZINESS [None]
  - MALAISE [None]
  - WEIGHT DECREASED [None]
  - NASAL CONGESTION [None]
  - OSTEOPOROSIS [None]
